FAERS Safety Report 9344614 (Version 1)
Quarter: 2013Q2

REPORT INFORMATION
  Report Type: Report from Study
  Country: US (occurrence: US)
  Receive Date: 20130612
  Receipt Date: 20130612
  Transmission Date: 20140414
  Serious: Yes (Hospitalization, Other)
  Sender: FDA-Public Use
  Company Number: PHEH2013US012231

PATIENT
  Sex: Male

DRUGS (3)
  1. GLEEVEC [Suspect]
     Indication: SOFT TISSUE NEOPLASM
     Dosage: 400 MG, DAILY
     Route: 048
     Dates: start: 20121024
  2. LISINOPRIL [Suspect]
     Dosage: UNK UKN, UNK
  3. PLAVIX [Suspect]
     Dosage: UNK UKN, UNK

REACTIONS (4)
  - Sepsis [Unknown]
  - Renal failure [Unknown]
  - Dehydration [Unknown]
  - Hypotension [Unknown]
